FAERS Safety Report 17232079 (Version 3)
Quarter: 2020Q2

REPORT INFORMATION
  Report Type: Report from Study
  Country: US (occurrence: US)
  Receive Date: 20200103
  Receipt Date: 20200508
  Transmission Date: 20200713
  Serious: No
  Sender: FDA-Public Use
  Company Number: US-SA-2020SA001211

PATIENT
  Age: 73 Year
  Sex: Male

DRUGS (2)
  1. DUPILUMAB [Suspect]
     Active Substance: DUPILUMAB
     Indication: DERMATITIS ATOPIC
     Dosage: 600 MG, 1X
     Route: 058
  2. DUPILUMAB [Suspect]
     Active Substance: DUPILUMAB
     Dosage: 300 MG, QOW
     Route: 058
     Dates: start: 20190807

REACTIONS (3)
  - Rash erythematous [Unknown]
  - Therapeutic response decreased [Unknown]
  - Arthritis [Unknown]

NARRATIVE: CASE EVENT DATE: 202004
